FAERS Safety Report 16249333 (Version 1)
Quarter: 2019Q2

REPORT INFORMATION
  Report Type: Spontaneous
  Country: IL (occurrence: IL)
  Receive Date: 20190429
  Receipt Date: 20190429
  Transmission Date: 20190711
  Serious: Yes (Other)
  Sender: FDA-Public Use
  Company Number: IL-SA-2019SA108518

PATIENT
  Age: 44 Year
  Sex: Female

DRUGS (2)
  1. LEMTRADA [Suspect]
     Active Substance: ALEMTUZUMAB
     Indication: MULTIPLE SCLEROSIS
     Dosage: UNK
     Route: 065
     Dates: start: 2009, end: 2009
  2. LEMTRADA [Suspect]
     Active Substance: ALEMTUZUMAB
     Dosage: UNK
     Route: 065
     Dates: start: 2010, end: 2010

REACTIONS (5)
  - Basedow^s disease [Unknown]
  - Hypercoagulation [Unknown]
  - Hyperthyroidism [Unknown]
  - Intraductal proliferative breast lesion [Unknown]
  - Breast cancer [Unknown]

NARRATIVE: CASE EVENT DATE: 201903
